FAERS Safety Report 24406360 (Version 2)
Quarter: 2024Q4

REPORT INFORMATION
  Report Type: Spontaneous
  Country: JP (occurrence: JP)
  Receive Date: 20241007
  Receipt Date: 20241018
  Transmission Date: 20250115
  Serious: Yes (Other)
  Sender: INCYTE
  Company Number: JP-INCYTE CORPORATION-2024IN000673

PATIENT

DRUGS (1)
  1. PEMAZYRE [Suspect]
     Active Substance: PEMIGATINIB
     Indication: Bile duct cancer
     Dosage: UNK
     Route: 065
     Dates: start: 20240111, end: 20240212

REACTIONS (1)
  - Bile duct cancer [Unknown]
